FAERS Safety Report 6896874-5 (Version None)
Quarter: 2010Q3

REPORT INFORMATION
  Report Type: 
  Country: None (occurrence: None)
  Receive Date: 20100802
  Receipt Date: 20070228
  Transmission Date: 20110219
  Serious: No
  Sender: FDA-Public Use
  Company Number: US-PFIZER INC-2007017101

PATIENT
  Sex: Female

DRUGS (6)
  1. LYRICA [Suspect]
     Indication: RESTLESS LEGS SYNDROME
     Dates: start: 20061201
  2. LYRICA [Suspect]
     Indication: NEUROPATHY PERIPHERAL
  3. SINEMET [Concomitant]
  4. MIRAPEX [Concomitant]
  5. PRAVACHOL [Concomitant]
  6. WARFARIN SODIUM [Concomitant]

REACTIONS (1)
  - WEIGHT INCREASED [None]
